FAERS Safety Report 16397198 (Version 1)
Quarter: 2019Q2

REPORT INFORMATION
  Report Type: Spontaneous
  Country: GB (occurrence: GB)
  Receive Date: 20190606
  Receipt Date: 20190606
  Transmission Date: 20190711
  Serious: Yes (Hospitalization)
  Sender: FDA-Public Use
  Company Number: GB-ACCORD-131295

PATIENT
  Age: 92 Year
  Sex: Female

DRUGS (9)
  1. SOTALOL. [Concomitant]
     Active Substance: SOTALOL
  2. CANDESARTAN. [Concomitant]
     Active Substance: CANDESARTAN
     Dosage: STOPPED DUE TO LOW BLOOD PRESSURE
  3. OMEPRAZOLE. [Concomitant]
     Active Substance: OMEPRAZOLE
  4. PARACETAMOL [Concomitant]
     Active Substance: ACETAMINOPHEN
  5. APIXABAN [Concomitant]
     Active Substance: APIXABAN
  6. AMLODIPINE [Concomitant]
     Active Substance: AMLODIPINE BESYLATE
     Dosage: STOPPED DUE TO ANKLE SWELLING
  7. FUROSEMIDE. [Concomitant]
     Active Substance: FUROSEMIDE
     Dosage: STOPPED DUE TO HYPOTENSION
  8. ARIPIPRAZOLE. [Suspect]
     Active Substance: ARIPIPRAZOLE
     Indication: CHARLES BONNET SYNDROME
     Dosage: NIGHT.
     Route: 048
     Dates: start: 20180403, end: 20190408
  9. MIRTAZAPINE. [Concomitant]
     Active Substance: MIRTAZAPINE

REACTIONS (5)
  - Muscle rigidity [Unknown]
  - Resting tremor [Recovering/Resolving]
  - Parkinsonism [Recovering/Resolving]
  - Off label use [Unknown]
  - Gait disturbance [Unknown]

NARRATIVE: CASE EVENT DATE: 20190208
